FAERS Safety Report 7455684-0 (Version None)
Quarter: 2011Q2

REPORT INFORMATION
  Report Type: 
  Country: None (occurrence: None)
  Receive Date: 20110503
  Receipt Date: 20110426
  Transmission Date: 20111010
  Serious: Yes (Hospitalization)
  Sender: FDA-Public Use
  Company Number: IE-B.I. PHARMACEUTICALS,INC./RIDGEFIELD-2011-UK-00390UK

PATIENT
  Sex: Male
  Weight: 75 kg

DRUGS (8)
  1. THIAMINE [Concomitant]
     Indication: ALCOHOL USE
     Dosage: 300 MG
     Route: 048
     Dates: start: 20110302
  2. EPLENERONE [Concomitant]
     Indication: CONGESTIVE CARDIOMYOPATHY
     Dosage: 25 MG
     Route: 048
     Dates: start: 20110302
  3. PRADAXA [Suspect]
     Dosage: 300 MG
     Route: 048
     Dates: start: 20110324, end: 20110405
  4. RAMIPRIL [Concomitant]
     Indication: CONGESTIVE CARDIOMYOPATHY
     Dosage: 10 MG
     Route: 048
     Dates: start: 20110302
  5. BISOPROLOL FUMARATE [Concomitant]
     Indication: CONGESTIVE CARDIOMYOPATHY
     Dosage: 10 MG
     Route: 048
     Dates: start: 20110302
  6. PRADAXA [Suspect]
     Indication: CEREBROVASCULAR ACCIDENT PROPHYLAXIS
     Dosage: 220 MG
     Route: 048
     Dates: start: 20110302, end: 20110324
  7. LANSOPRAZOLE [Concomitant]
     Indication: GASTROINTESTINAL DISORDER
     Dosage: 30 MG
     Route: 048
     Dates: start: 20110302
  8. ATORVASTATIN CALCIUM [Concomitant]
     Indication: HYPERLIPIDAEMIA
     Dosage: 40 MG
     Route: 048
     Dates: start: 20110302

REACTIONS (6)
  - HEMIPARESIS [None]
  - APHASIA [None]
  - VIITH NERVE PARALYSIS [None]
  - DYSARTHRIA [None]
  - ISCHAEMIC STROKE [None]
  - HEMISENSORY NEGLECT [None]
